FAERS Safety Report 7509300-X (Version None)
Quarter: 2011Q2

REPORT INFORMATION
  Report Type: 
  Country: None (occurrence: None)
  Receive Date: 20110527
  Receipt Date: 20110525
  Transmission Date: 20111010
  Serious: Yes (Other)
  Sender: FDA-Public Use
  Company Number: US-ABBOTT-11P-163-0711235-00

PATIENT
  Sex: Female
  Weight: 74.91 kg

DRUGS (3)
  1. PROTONIX [Concomitant]
     Indication: GASTRITIS
  2. LUPRON DEPOT [Suspect]
     Indication: PELVIC PAIN
  3. LUPRON DEPOT [Suspect]
     Indication: OVARIAN CYST
     Dates: start: 20110121, end: 20110221

REACTIONS (16)
  - RASH GENERALISED [None]
  - CHEST PAIN [None]
  - PAIN [None]
  - VOMITING [None]
  - PRURITUS [None]
  - NAUSEA [None]
  - FIBROMYALGIA [None]
  - RASH [None]
  - DIARRHOEA [None]
  - CHOKING SENSATION [None]
  - CYST RUPTURE [None]
  - URTICARIA [None]
  - PELVIC PAIN [None]
  - HYPERSENSITIVITY [None]
  - MOOD SWINGS [None]
  - HOT FLUSH [None]
